FAERS Safety Report 4592527-7 (Version None)
Quarter: 2005Q1

REPORT INFORMATION
  Report Type: 
  Country: None (occurrence: None)
  Receive Date: 20050222
  Receipt Date: 20050120
  Transmission Date: 20050727
  Serious: Yes (Death)
  Sender: FDA-Public Use
  Company Number: 2005-00084

PATIENT
  Age: 42 Year
  Sex: Female
  Weight: 121 kg

DRUGS (5)
  1. INTEGRILIN [Suspect]
     Indication: CORONARY ANGIOPLASTY
     Dosage: 180.00 + 2.00 MG/KG, IV BOLUS - SEE IMAGE
     Route: 040
     Dates: start: 20041230, end: 20041230
  2. INTEGRILIN [Suspect]
     Indication: CORONARY ANGIOPLASTY
     Dosage: 180.00 + 2.00 MG/KG, IV BOLUS - SEE IMAGE
     Route: 040
     Dates: start: 20041230, end: 20041230
  3. HEPARIN [Concomitant]
  4. PLAVIX [Concomitant]
  5. ASPIRIN [Concomitant]

REACTIONS (5)
  - ACUTE MYOCARDIAL INFARCTION [None]
  - BRADYCARDIA [None]
  - HYPOTENSION [None]
  - RENAL FAILURE [None]
  - RETROPERITONEAL HAEMORRHAGE [None]
